FAERS Safety Report 10285803 (Version 1)
Quarter: 2014Q3

REPORT INFORMATION
  Report Type: Spontaneous
  Country: US (occurrence: None)
  Receive Date: 20140703
  Receipt Date: 20140703
  Transmission Date: 20150326
  Serious: Yes (Life-Threatening, Hospitalization, Disabling)
  Sender: FDA-Public Use
  Company Number: None

PATIENT
  Age: 31 Year
  Sex: Male
  Weight: 104.33 kg

DRUGS (10)
  1. ONE A DAY MENS [Concomitant]
     Active Substance: VITAMINS
  2. OMEPRAZOLE. [Concomitant]
     Active Substance: OMEPRAZOLE
  3. ONDANSETRAN [Concomitant]
     Active Substance: ONDANSETRON HYDROCHLORIDE
  4. BENTYL [Suspect]
     Active Substance: DICYCLOMINE HYDROCHLORIDE
     Indication: IRRITABLE BOWEL SYNDROME
     Dosage: 20 MG, 20, TWICE DAILY, 4?
     Dates: start: 20140424, end: 20140425
  5. DIPHENYDRAMINE [Concomitant]
  6. OXYCODONE [Concomitant]
     Active Substance: OXYCODONE
  7. LISINOPRIL HCTZ [Concomitant]
     Active Substance: HYDROCHLOROTHIAZIDE\LISINOPRIL
  8. KEPPRA [Concomitant]
     Active Substance: LEVETIRACETAM
  9. DIAZEPAM. [Concomitant]
     Active Substance: DIAZEPAM
  10. ALBUTEROL. [Concomitant]
     Active Substance: ALBUTEROL

REACTIONS (8)
  - Injury [None]
  - Facial pain [None]
  - Pain in extremity [None]
  - Headache [None]
  - Plastic surgery to the face [None]
  - Amnesia [None]
  - Road traffic accident [None]
  - Insomnia [None]

NARRATIVE: CASE EVENT DATE: 20130425
